FAERS Safety Report 19088421 (Version 1)
Quarter: 2021Q2

REPORT INFORMATION
  Report Type: Spontaneous
  Country: DE (occurrence: DE)
  Receive Date: 20210402
  Receipt Date: 20210402
  Transmission Date: 20210717
  Serious: Yes (Hospitalization)
  Sender: FDA-Public Use
  Company Number: NVSC2021DE071946

PATIENT
  Sex: Male

DRUGS (1)
  1. RIVASTIGMIN ? 1 A PHARMA 4,6 MG/24 STUNDEN TRANSDERMALES PFLASTER [Suspect]
     Active Substance: RIVASTIGMINE
     Indication: PRODUCT USED FOR UNKNOWN INDICATION
     Dosage: 4.6 MG, QD (9.0 MG RIVASTIGMINE BASE (PATCH 5.0 (CM2))
     Route: 062

REACTIONS (2)
  - Overdose [Unknown]
  - Dysphagia [Unknown]
